FAERS Safety Report 9353658 (Version 4)
Quarter: 2013Q3

REPORT INFORMATION
  Report Type: Spontaneous
  Country: US (occurrence: None)
  Receive Date: 20130612
  Receipt Date: 20130701
  Transmission Date: 20140515
  Serious: Yes (Hospitalization, Other)
  Sender: FDA-Public Use
  Company Number: USA/USA/13/0029951

PATIENT
  Age: 91 Year
  Sex: Female
  Weight: 58.51 kg

DRUGS (4)
  1. TIZANIDINE [Suspect]
     Indication: NAUSEA
     Route: 048
     Dates: start: 20120224, end: 20130316
  2. FENTANYL PATCH (FENTANYL) [Concomitant]
  3. HYDROCODONE/ACETAMINOPHEN (VICODIN) [Concomitant]
  4. PRADAXA (DABIGATRAN ETEXILATE MESILATE) [Concomitant]

REACTIONS (11)
  - Medication error [None]
  - Nausea [None]
  - Vomiting [None]
  - Retching [None]
  - Dyspnoea [None]
  - Hypotension [None]
  - Hiatus hernia [None]
  - Atelectasis [None]
  - Urinary tract infection [None]
  - Malaise [None]
  - Oropharyngeal candidiasis [None]
